FAERS Safety Report 9807416 (Version 1)
Quarter: 2014Q1

REPORT INFORMATION
  Report Type: Spontaneous
  Country: US (occurrence: US)
  Receive Date: 20140110
  Receipt Date: 20140110
  Transmission Date: 20141002
  Serious: Yes (Hospitalization, Other)
  Sender: FDA-Public Use
  Company Number: US-CELGENEUS-163-21880-14010397

PATIENT
  Age: 67 Year
  Sex: Male

DRUGS (3)
  1. REVLIMID [Suspect]
     Indication: PLASMA CELL MYELOMA
     Dosage: 10 MILLIGRAM
     Route: 048
     Dates: start: 201202
  2. REVLIMID [Suspect]
     Dosage: 10 MILLIGRAM
     Route: 048
     Dates: start: 20131223
  3. BLOOD TRANSFUSION [Concomitant]
     Route: 041
     Dates: start: 20140101, end: 20140101

REACTIONS (3)
  - Upper limb fracture [Unknown]
  - Dizziness [Unknown]
  - Fall [Unknown]
